FAERS Safety Report 6620445-9 (Version None)
Quarter: 2010Q1

REPORT INFORMATION
  Report Type: 
  Country: None (occurrence: None)
  Receive Date: 20100309
  Receipt Date: 20100225
  Transmission Date: 20100710
  Serious: Yes (Hospitalization)
  Sender: FDA-Public Use
  Company Number: GB-ELI_LILLY_AND_COMPANY-GB201001002488

PATIENT
  Sex: Male
  Weight: 117.9 kg

DRUGS (13)
  1. BYETTA [Suspect]
     Dosage: 5 UG, UNKNOWN
     Dates: start: 20091201
  2. BYETTA [Suspect]
     Dosage: 10 UG, UNKNOWN
  3. AMITRIPTYLLIN [Concomitant]
     Indication: SPINAL OSTEOARTHRITIS
     Dosage: 50 MG, UNK
     Route: 048
     Dates: start: 20080401
  4. ASPIRIN [Concomitant]
     Dosage: 75 MG, UNK
     Route: 048
     Dates: start: 20041201
  5. GLIMEPIRIDE [Concomitant]
     Indication: DIABETES MELLITUS
     Dosage: 2 MG, UNK
     Route: 048
     Dates: start: 20081101
  6. LEVOTHYROXINE [Concomitant]
     Indication: HYPOTHYROIDISM
     Dosage: 50 UG, UNK
     Route: 048
     Dates: start: 20070601
  7. METFORMIN HYDROCHLORIDE [Concomitant]
     Indication: DIABETES MELLITUS
     Dosage: 1 G, 2/D
     Route: 048
     Dates: start: 20040501
  8. NAPROXEN [Concomitant]
     Indication: ARTHRALGIA
     Dosage: 500 MG, 2/D
     Dates: start: 20080301
  9. OMEPRAZOLE [Concomitant]
     Indication: GASTRITIS PROPHYLAXIS
     Dosage: 40 MG, DAILY (1/D)
     Route: 048
     Dates: start: 20090701
  10. PREGABALIN [Concomitant]
     Indication: SPINAL OSTEOARTHRITIS
     Dosage: 150 MG, 2/D
     Route: 048
     Dates: start: 20060601
  11. RAMIPRIL [Concomitant]
     Indication: HYPERTENSION
     Dosage: 10 MG, 2/D
     Route: 048
     Dates: start: 20080801
  12. SIMVASTATIN [Concomitant]
     Indication: BLOOD CHOLESTEROL INCREASED
     Dosage: 40 MG, DAILY (1/D)
     Route: 048
     Dates: start: 20041201
  13. TRAMADOL HCL [Concomitant]
     Indication: SPINAL OSTEOARTHRITIS
     Dosage: 50 MG, AS NEEDED
     Route: 048
     Dates: start: 20021201

REACTIONS (3)
  - ABDOMINAL PAIN [None]
  - DIVERTICULITIS [None]
  - GASTROINTESTINAL HAEMORRHAGE [None]
